FAERS Safety Report 4725893-X (Version None)
Quarter: 2005Q3

REPORT INFORMATION
  Report Type: 
  Country: None (occurrence: None)
  Receive Date: 20050727
  Receipt Date: 20050419
  Transmission Date: 20060218
  Serious: Yes (Hospitalization)
  Sender: FDA-Public Use
  Company Number: US-MERCK-0504USA03731

PATIENT
  Age: 49 Year
  Sex: Male
  Weight: 136 kg

DRUGS (10)
  1. VIOXX [Suspect]
     Indication: OSTEOARTHRITIS
     Route: 048
     Dates: start: 20000630, end: 20040930
  2. GLUCOPHAGE [Concomitant]
     Route: 065
  3. LIPITOR [Concomitant]
     Route: 065
     Dates: start: 19980101, end: 20030401
  4. AMARYL [Concomitant]
     Route: 065
  5. ZESTORETIC [Concomitant]
     Route: 065
  6. EFFEXOR [Concomitant]
     Route: 065
  7. GLUCOVANCE [Concomitant]
     Route: 065
  8. ZYPREXA [Concomitant]
     Route: 065
  9. PEPCID [Concomitant]
     Route: 065
  10. VASERETIC [Concomitant]
     Route: 065

REACTIONS (5)
  - ACUTE MYOCARDIAL INFARCTION [None]
  - BACTERIAL INFECTION [None]
  - BIPOLAR DISORDER [None]
  - DEPRESSION [None]
  - MANIA [None]
